FAERS Safety Report 5024814-2 (Version None)
Quarter: 2006Q2

REPORT INFORMATION
  Report Type: 
  Country: None (occurrence: None)
  Receive Date: 20060607
  Receipt Date: 20060525
  Transmission Date: 20061013
  Serious: Yes (Hospitalization)
  Sender: FDA-Public Use
  Company Number: HQWYE301913MAR06

PATIENT
  Age: 60 Year
  Sex: Male

DRUGS (6)
  1. CYCLOSPORINE [Suspect]
     Indication: PROPHYLAXIS AGAINST TRANSPLANT REJECTION
     Dosage: 150 MG 2X PER 1 DAY ORAL; 250 MG 1X PER 1 DAY ORAL
     Route: 048
     Dates: start: 20051216, end: 20060311
  2. CYCLOSPORINE [Suspect]
     Indication: PROPHYLAXIS AGAINST TRANSPLANT REJECTION
     Dosage: 150 MG 2X PER 1 DAY ORAL; 250 MG 1X PER 1 DAY ORAL
     Route: 048
     Dates: start: 20060312
  3. VALACYCLOVIR [Suspect]
     Indication: ANTIVIRAL PROPHYLAXIS
     Dosage: 3 G 1X PER 1 DAY ORAL
     Route: 048
     Dates: start: 20051215, end: 20060306
  4. MYCOPHENOLATE MOFETIL [Concomitant]
  5. PREDNISOLONE [Concomitant]
  6. BACTRIM [Concomitant]

REACTIONS (9)
  - ABSCESS [None]
  - BACK PAIN [None]
  - ECHOCARDIOGRAM ABNORMAL [None]
  - ENDOCARDITIS ENTEROCOCCAL [None]
  - MITRAL VALVE CALCIFICATION [None]
  - MITRAL VALVE INCOMPETENCE [None]
  - MYCOBACTERIUM AVIUM COMPLEX INFECTION [None]
  - NEUTROPENIA [None]
  - WHITE BLOOD CELL COUNT DECREASED [None]
